FAERS Safety Report 4939210-3 (Version None)
Quarter: 2006Q1

REPORT INFORMATION
  Report Type: 
  Country: None (occurrence: None)
  Receive Date: 20060310
  Receipt Date: 20060224
  Transmission Date: 20060701
  Serious: Yes (Other)
  Sender: FDA-Public Use
  Company Number: 2006AC00333

PATIENT
  Age: 64 Year
  Sex: Female
  Weight: 91 kg

DRUGS (3)
  1. ARIMIDEX [Suspect]
     Route: 048
     Dates: start: 20051118, end: 20051130
  2. SELOKEEN [Concomitant]
     Indication: HYPERTENSION
     Route: 048
     Dates: start: 20030701
  3. CALCICHEW [Concomitant]
     Route: 048
     Dates: start: 20040703

REACTIONS (1)
  - FIBROMYALGIA [None]
